FAERS Safety Report 24875809 (Version 3)
Quarter: 2025Q2

REPORT INFORMATION
  Report Type: Report from Study
  Country: US (occurrence: US)
  Receive Date: 20250122
  Receipt Date: 20250405
  Transmission Date: 20250716
  Serious: No
  Sender: ABBVIE
  Company Number: US-ABBVIE-6089279

PATIENT
  Age: 61 Year
  Sex: Female

DRUGS (3)
  1. ARMOUR THYROID [Suspect]
     Active Substance: THYROID, PORCINE
     Indication: Hypothyroidism
     Dosage: FORM STRENGTH: 120 MILLIGRAM
     Route: 048
     Dates: start: 2015, end: 2022
  2. ARMOUR THYROID [Suspect]
     Active Substance: THYROID, PORCINE
     Indication: Hypothyroidism
     Dosage: FORM STRENGTH: 120 MILLIGRAM
     Route: 048
     Dates: start: 2025
  3. ARMOUR THYROID [Suspect]
     Active Substance: THYROID, PORCINE
     Indication: Hypothyroidism
     Route: 048

REACTIONS (8)
  - Pain in extremity [Recovering/Resolving]
  - Product dispensing error [Unknown]
  - Toothache [Not Recovered/Not Resolved]
  - Incorrect dose administered [Unknown]
  - Goitre [Recovering/Resolving]
  - Heart rate irregular [Recovering/Resolving]
  - Alopecia [Recovering/Resolving]
  - Thyroid mass [Recovered/Resolved]

NARRATIVE: CASE EVENT DATE: 20220101
